FAERS Safety Report 13597347 (Version 1)
Quarter: 2017Q2

REPORT INFORMATION
  Report Type: Spontaneous
  Country: US (occurrence: US)
  Receive Date: 20170531
  Receipt Date: 20170531
  Transmission Date: 20170830
  Serious: No
  Sender: FDA-Public Use
  Company Number: US-GLAXOSMITHKLINE-US2017078408

PATIENT
  Age: 60 Year
  Sex: Female

DRUGS (1)
  1. NICODERM CQ [Suspect]
     Active Substance: NICOTINE
     Indication: SMOKING CESSATION THERAPY
     Dosage: 21 MG, UNK
     Dates: start: 201704

REACTIONS (6)
  - Nausea [Not Recovered/Not Resolved]
  - Application site irritation [Recovered/Resolved]
  - Application site erythema [Not Recovered/Not Resolved]
  - Application site urticaria [Recovered/Resolved]
  - Application site pain [Recovered/Resolved]
  - Application site pruritus [Not Recovered/Not Resolved]
